FAERS Safety Report 21802681 (Version 1)
Quarter: 2022Q4

REPORT INFORMATION
  Report Type: Spontaneous
  Country: JP (occurrence: JP)
  Receive Date: 20221231
  Receipt Date: 20221231
  Transmission Date: 20230113
  Serious: Yes (Other)
  Sender: FDA-Public Use
  Company Number: JP-AMGEN-JPNSP2022147630

PATIENT
  Sex: Female

DRUGS (2)
  1. LUMAKRAS [Suspect]
     Active Substance: SOTORASIB
     Indication: Non-small cell lung cancer
     Dosage: UNK
     Route: 048
     Dates: start: 20220726
  2. LUMAKRAS [Suspect]
     Active Substance: SOTORASIB
     Dosage: 480 MILLIGRAM, QD
     Route: 048
     Dates: end: 2022

REACTIONS (2)
  - Hepatic function abnormal [Recovered/Resolved]
  - Nausea [Recovered/Resolved]

NARRATIVE: CASE EVENT DATE: 20220101
